FAERS Safety Report 23302388 (Version 5)
Quarter: 2024Q3

REPORT INFORMATION
  Report Type: Spontaneous
  Country: US (occurrence: US)
  Receive Date: 20231215
  Receipt Date: 20240910
  Transmission Date: 20241017
  Serious: Yes (Hospitalization, Other)
  Sender: PFIZER
  Company Number: US-PFIZER INC-PV202300197180

PATIENT
  Age: 60 Year
  Sex: Female
  Weight: 65.76 kg

DRUGS (5)
  1. IBRANCE [Suspect]
     Active Substance: PALBOCICLIB
     Indication: Breast cancer metastatic
     Dosage: 75 MG, CYCLIC (21 DAYS ON AND 14 DAYS OFF)
     Route: 048
     Dates: start: 201902, end: 202312
  2. IBRANCE [Suspect]
     Active Substance: PALBOCICLIB
     Indication: Metastasis
  3. IBRANCE [Suspect]
     Active Substance: PALBOCICLIB
     Indication: Breast cancer stage II
  4. LETROZOLE [Suspect]
     Active Substance: LETROZOLE
     Indication: Metastasis
     Dosage: UNK UNK, 1X/DAY
     Dates: start: 2019
  5. XGEVA [Suspect]
     Active Substance: DENOSUMAB
     Indication: Metastasis
     Dosage: UNK
     Dates: start: 2019, end: 202302

REACTIONS (4)
  - Femur fracture [Recovering/Resolving]
  - Off label use [Recovering/Resolving]
  - Neoplasm progression [Recovering/Resolving]
  - Neutrophil count decreased [Recovering/Resolving]

NARRATIVE: CASE EVENT DATE: 20190101
